FAERS Safety Report 5901300-6 (Version None)
Quarter: 2008Q3

REPORT INFORMATION
  Report Type: 
  Country: None (occurrence: None)
  Receive Date: 20080929
  Receipt Date: 20080923
  Transmission Date: 20090109
  Serious: Yes (Hospitalization, Other)
  Sender: FDA-Public Use
  Company Number: PR-BAYER-200823514NA

PATIENT
  Age: 63 Year
  Sex: Female
  Weight: 47 kg

DRUGS (3)
  1. AVELOX [Suspect]
     Indication: PHARYNGEAL ERYTHEMA
     Dosage: TOTAL DAILY DOSE: 400 MG  UNIT DOSE: 400 MG
     Route: 048
  2. ADVAIR DISKUS 100/50 [Concomitant]
     Dosage: TOTAL DAILY DOSE: 2  PUFF
  3. NORVASC [Concomitant]
     Dosage: TOTAL DAILY DOSE: 5 MG
     Route: 048

REACTIONS (12)
  - ANAPHYLACTIC SHOCK [None]
  - BLISTER [None]
  - CHEST PAIN [None]
  - EYE SWELLING [None]
  - HEADACHE [None]
  - LIP BLISTER [None]
  - MUSCLE INJURY [None]
  - MUSCLE SPASMS [None]
  - PAIN IN EXTREMITY [None]
  - PRURITUS [None]
  - SENSORY LOSS [None]
  - WEIGHT DECREASED [None]
